FAERS Safety Report 17605145 (Version 3)
Quarter: 2020Q2

REPORT INFORMATION
  Report Type: Spontaneous
  Country: FR (occurrence: FR)
  Receive Date: 20200331
  Receipt Date: 20200501
  Transmission Date: 20200713
  Serious: Yes (Life-Threatening, Hospitalization, Other)
  Sender: FDA-Public Use
  Company Number: FR-MACLEODS PHARMACEUTICALS US LTD-MAC2020025953

PATIENT

DRUGS (6)
  1. METHOTREXATE. [Suspect]
     Active Substance: METHOTREXATE
     Indication: RHEUMATIC DISORDER
     Dosage: 20 MILLIGRAM, Q.W.
     Route: 065
  2. INFLIXIMAB [Suspect]
     Active Substance: INFLIXIMAB
     Indication: RHEUMATIC DISORDER
     Dosage: UNK
     Route: 065
  3. CELECOXIB. [Suspect]
     Active Substance: CELECOXIB
     Indication: RHEUMATIC DISORDER
     Dosage: UNK
     Route: 065
  4. AMOXICILLIN/CLAVULANATE POTASSIUM [Suspect]
     Active Substance: AMOXICILLIN\CLAVULANATE POTASSIUM
     Indication: EAR PAIN
  5. AMOXICILLIN/CLAVULANATE POTASSIUM [Suspect]
     Active Substance: AMOXICILLIN\CLAVULANATE POTASSIUM
     Indication: RHEUMATIC DISORDER
     Dosage: UNK
     Route: 065
  6. AMOXICILLIN/CLAVULANATE POTASSIUM [Suspect]
     Active Substance: AMOXICILLIN\CLAVULANATE POTASSIUM
     Indication: ODYNOPHAGIA

REACTIONS (16)
  - Drug reaction with eosinophilia and systemic symptoms [Recovering/Resolving]
  - Ejection fraction decreased [Recovered/Resolved]
  - Hepatocellular injury [Recovered/Resolved]
  - Bundle branch block left [Recovered/Resolved]
  - Cardiac disorder [Recovered/Resolved]
  - Lymphadenopathy [Recovered/Resolved]
  - Drug eruption [Unknown]
  - Acute generalised exanthematous pustulosis [Recovered/Resolved]
  - Epstein-Barr virus infection reactivation [Not Recovered/Not Resolved]
  - Cardiopulmonary failure [Recovered/Resolved]
  - Anaemia [Unknown]
  - Lymphadenopathy [Unknown]
  - Thrombocytopenia [Unknown]
  - Interstitial lung disease [Recovering/Resolving]
  - C-reactive protein increased [Unknown]
  - Ventricular dysfunction [Recovered/Resolved]
